FAERS Safety Report 19417940 (Version 2)
Quarter: 2023Q1

REPORT INFORMATION
  Report Type: Spontaneous
  Country: DK (occurrence: DK)
  Receive Date: 20210615
  Receipt Date: 20230331
  Transmission Date: 20230417
  Serious: Yes (Life-Threatening, Hospitalization)
  Sender: FDA-Public Use
  Company Number: None

PATIENT
  Age: 30 Year
  Sex: Male
  Weight: 52 kg

DRUGS (1)
  1. ASACOL [Suspect]
     Active Substance: MESALAMINE
     Indication: Colitis ulcerative
     Dosage: 4800 MG, QD STRENGTH: 800 MG
     Route: 048
     Dates: start: 20210311, end: 20210326

REACTIONS (2)
  - Chest pain [Recovered/Resolved]
  - Myopericarditis [Recovered/Resolved]

NARRATIVE: CASE EVENT DATE: 20210323
